FAERS Safety Report 8016753-X (Version None)
Quarter: 2012Q1

REPORT INFORMATION
  Report Type: 
  Country: None (occurrence: None)
  Receive Date: 20120102
  Receipt Date: 20111222
  Transmission Date: 20120608
  Serious: No
  Sender: FDA-Public Use
  Company Number: US-BIOGENIDEC-2011BI048592

PATIENT
  Sex: Female

DRUGS (1)
  1. AVONEX [Suspect]
     Indication: MULTIPLE SCLEROSIS
     Route: 030
     Dates: start: 19961001

REACTIONS (4)
  - MUSCULAR WEAKNESS [None]
  - TEMPERATURE INTOLERANCE [None]
  - MULTIPLE SCLEROSIS RELAPSE [None]
  - FALL [None]
